FAERS Safety Report 19577164 (Version 4)
Quarter: 2021Q3

REPORT INFORMATION
  Report Type: Spontaneous
  Country: US (occurrence: US)
  Receive Date: 20210719
  Receipt Date: 20210927
  Transmission Date: 20211014
  Serious: Yes (Death, Other)
  Sender: FDA-Public Use
  Company Number: US-ROCHE-2848780

PATIENT
  Age: 67 Year
  Sex: Female

DRUGS (2)
  1. XELODA [Suspect]
     Active Substance: CAPECITABINE
     Indication: PRODUCT USED FOR UNKNOWN INDICATION
     Route: 065
  2. TUKYSA [Suspect]
     Active Substance: TUCATINIB
     Indication: BREAST CANCER FEMALE
     Route: 065

REACTIONS (14)
  - Compression fracture [Unknown]
  - Death [Fatal]
  - Abdominal pain upper [Unknown]
  - Back pain [Unknown]
  - Diarrhoea [Recovering/Resolving]
  - Hypophagia [Unknown]
  - Malaise [Unknown]
  - Dry mouth [Unknown]
  - Feeding disorder [Unknown]
  - Dysgeusia [Unknown]
  - Hepatic function abnormal [Unknown]
  - Sleep disorder [Unknown]
  - Confusional state [Unknown]
  - Gastric disorder [Unknown]

NARRATIVE: CASE EVENT DATE: 20210519
